FAERS Safety Report 6992223-2 (Version None)
Quarter: 2010Q3

REPORT INFORMATION
  Report Type: 
  Country: None (occurrence: None)
  Receive Date: 20100917
  Receipt Date: 20100907
  Transmission Date: 20110219
  Serious: Yes (Other)
  Sender: FDA-Public Use
  Company Number: US-PFIZER INC-2010113083

PATIENT
  Sex: Female
  Weight: 117.91 kg

DRUGS (3)
  1. NEURONTIN [Suspect]
     Indication: FIBROMYALGIA
     Dosage: UNK
     Route: 048
     Dates: start: 19900101
  2. MORPHINE SULFATE [Suspect]
     Indication: PAIN
     Dosage: UNK
     Route: 048
     Dates: start: 20000101
  3. DETROL LA [Concomitant]
     Indication: BLADDER DISORDER
     Dosage: UNK
     Route: 048

REACTIONS (2)
  - ARNOLD-CHIARI MALFORMATION [None]
  - CARDIAC VALVE DISEASE [None]
